FAERS Safety Report 5308267-2 (Version None)
Quarter: 2007Q2

REPORT INFORMATION
  Report Type: 
  Country: None (occurrence: None)
  Receive Date: 20070426
  Receipt Date: 20070423
  Transmission Date: 20071010
  Serious: Yes (Hospitalization)
  Sender: FDA-Public Use
  Company Number: US-RB-006064-07

PATIENT
  Sex: Male
  Weight: 157.05 kg

DRUGS (3)
  1. SUBOXONE [Suspect]
     Route: 060
  2. SUBOXONE [Suspect]
     Route: 060
  3. LASIX [Concomitant]

REACTIONS (3)
  - GENERALISED OEDEMA [None]
  - PAIN IN EXTREMITY [None]
  - WEIGHT INCREASED [None]
